FAERS Safety Report 23029044 (Version 2)
Quarter: 2023Q4

REPORT INFORMATION
  Report Type: Spontaneous
  Country: US (occurrence: US)
  Receive Date: 20231004
  Receipt Date: 20231122
  Transmission Date: 20240109
  Serious: Yes (Death, Other)
  Sender: FDA-Public Use
  Company Number: US-Merck Healthcare KGaA-2023477306

PATIENT
  Age: 48 Year
  Sex: Male
  Weight: 96 kg

DRUGS (15)
  1. TEPOTINIB [Suspect]
     Active Substance: TEPOTINIB
     Indication: Glioblastoma
     Route: 048
     Dates: start: 20230908, end: 20230918
  2. TEPOTINIB [Suspect]
     Active Substance: TEPOTINIB
     Route: 048
     Dates: start: 20230919, end: 20230927
  3. TYLENOL [Concomitant]
     Active Substance: ACETAMINOPHEN
     Indication: Product used for unknown indication
     Dosage: PRN (AS REQUIRED)
     Route: 054
  4. ARTIFICIAL TEAR [HYPROMELLOSE] [Concomitant]
     Indication: Product used for unknown indication
     Dosage: SINGLE DOSE OPHTHALMIC SOLUTION, BOTH EYES
     Route: 047
  5. DECADRON (DEXAMETHASONE SODIUM PHOSPHATE) [Concomitant]
     Active Substance: DEXAMETHASONE SODIUM PHOSPHATE
     Indication: Product used for unknown indication
     Route: 042
  6. LOVENOX [Concomitant]
     Active Substance: ENOXAPARIN SODIUM
     Indication: Product used for unknown indication
     Dosage: SYRINGE
     Route: 058
  7. LASIX [Concomitant]
     Active Substance: FUROSEMIDE
     Indication: Product used for unknown indication
     Route: 042
  8. KEPPRA [Concomitant]
     Active Substance: LEVETIRACETAM
     Indication: Product used for unknown indication
     Dosage: IV PUSH
     Route: 042
  9. CALCIUM\MELATONIN\PYRIDOXINE HYDROCHLORIDE [Concomitant]
     Active Substance: CALCIUM\MELATONIN\PYRIDOXINE HYDROCHLORIDE
     Indication: Product used for unknown indication
     Dosage: QHS PRN
     Route: 048
  10. ZOFRAN [Concomitant]
     Active Substance: ONDANSETRON HYDROCHLORIDE
     Indication: Product used for unknown indication
     Dosage: Q6H PRN
     Route: 042
  11. OMEPRAZOLE [Concomitant]
     Active Substance: OMEPRAZOLE
     Indication: Product used for unknown indication
     Route: 042
  12. MIRALAX [Concomitant]
     Active Substance: POLYETHYLENE GLYCOL 3350
     Indication: Product used for unknown indication
     Dosage: 1 PACKET,QDAY, PRN
     Route: 048
  13. SENOKOT-S [Concomitant]
     Active Substance: DOCUSATE SODIUM\SENNOSIDES
     Indication: Product used for unknown indication
     Dosage: 1 TABLET, ORAL, DAILY PRN
     Route: 048
  14. SODIUM CHLORIDE [Concomitant]
     Active Substance: SODIUM CHLORIDE
     Indication: Product used for unknown indication
     Route: 048
  15. BACTRIM DS [Concomitant]
     Active Substance: SULFAMETHOXAZOLE\TRIMETHOPRIM
     Indication: Product used for unknown indication
     Dosage: 160/800 MG
     Route: 048

REACTIONS (4)
  - Disease progression [Fatal]
  - Alanine aminotransferase increased [Recovering/Resolving]
  - Aspartate aminotransferase increased [Recovering/Resolving]
  - Off label use [Unknown]

NARRATIVE: CASE EVENT DATE: 20230918
